FAERS Safety Report 5513722-6 (Version None)
Quarter: 2007Q4

REPORT INFORMATION
  Report Type: 
  Country: None (occurrence: None)
  Receive Date: 20071108
  Receipt Date: 20071108
  Transmission Date: 20080405
  Serious: Yes (Hospitalization)
  Sender: FDA-Public Use
  Company Number: None

PATIENT
  Sex: Male
  Weight: 64 kg

DRUGS (7)
  1. BEVACIZUMAB(GENENTECH) [Suspect]
     Indication: GLIOBLASTOMA MULTIFORME
     Dosage: 10 MG/KG
  2. ERLOTINIB(GENENTECH) [Suspect]
     Indication: GLIOBLASTOMA MULTIFORME
     Dosage: 200 MG/DAY
  3. LISINOPRIL [Concomitant]
  4. MINOCYCLINE HCL [Concomitant]
  5. ATIVAN [Concomitant]
  6. MARINOL [Concomitant]
  7. TYLENOL [Concomitant]

REACTIONS (7)
  - ALTERED STATE OF CONSCIOUSNESS [None]
  - CONVULSION [None]
  - HAEMORRHAGIC STROKE [None]
  - HYPERTENSION [None]
  - ISCHAEMIC STROKE [None]
  - NUCLEAR MAGNETIC RESONANCE IMAGING BRAIN ABNORMAL [None]
  - PYREXIA [None]
